FAERS Safety Report 8529151-7 (Version None)
Quarter: 2012Q3

REPORT INFORMATION
  Report Type: 
  Country: None (occurrence: None)
  Receive Date: 20120723
  Receipt Date: 20120718
  Transmission Date: 20120928
  Serious: Yes (Other)
  Sender: FDA-Public Use
  Company Number: US-AMGEN-USASP2011041038

PATIENT
  Age: 66 Year
  Sex: Male

DRUGS (2)
  1. ENBREL [Suspect]
     Dosage: 50 MG, QWK
     Dates: start: 20070101
  2. ENBREL [Suspect]
     Indication: PSORIASIS
     Dosage: 50 MG, Q3MO
     Route: 058
     Dates: start: 20090724

REACTIONS (4)
  - INJECTION SITE DISCHARGE [None]
  - CROHN'S DISEASE [None]
  - NEPHROLITHIASIS [None]
  - INJECTION SITE PAIN [None]
